FAERS Safety Report 9105361 (Version 1)
Quarter: 2013Q1

REPORT INFORMATION
  Report Type: Report from Study
  Country: JP (occurrence: JP)
  Receive Date: 20130220
  Receipt Date: 20130220
  Transmission Date: 20140127
  Serious: Yes (Disabling)
  Sender: FDA-Public Use
  Company Number: JP-GLAXOSMITHKLINE-B0868018A

PATIENT
  Age: 36 None
  Sex: Female
  Weight: 59 kg

DRUGS (5)
  1. TYKERB [Suspect]
     Indication: BREAST CANCER
     Route: 048
     Dates: start: 20111205, end: 20121217
  2. XELODA [Concomitant]
     Route: 048
     Dates: start: 20111205
  3. TRAMAL [Concomitant]
     Indication: PAIN
     Route: 048
     Dates: start: 201102
  4. ETODOLAC [Concomitant]
     Indication: PAIN
     Route: 048
     Dates: start: 201102
  5. LAC-B [Concomitant]
     Route: 048
     Dates: end: 20130125

REACTIONS (5)
  - Diarrhoea [Recovering/Resolving]
  - Rash [Recovered/Resolved]
  - Paronychia [Recovering/Resolving]
  - Dermatitis [Not Recovered/Not Resolved]
  - Impetigo [Recovering/Resolving]
